FAERS Safety Report 26115038 (Version 1)
Quarter: 2025Q4

REPORT INFORMATION
  Report Type: Spontaneous
  Country: US (occurrence: US)
  Receive Date: 20251203
  Receipt Date: 20251203
  Transmission Date: 20260117
  Serious: Yes (Hospitalization)
  Sender: VELOXIS PHARMACEUTICALS
  Company Number: US-Calliditas-2024CAL00765

PATIENT
  Age: 45 Year
  Sex: Female

DRUGS (7)
  1. TARPEYO [Suspect]
     Active Substance: BUDESONIDE
     Indication: IgA nephropathy
     Dosage: 16 MILLIGRAM, QD
  2. TARPEYO [Suspect]
     Active Substance: BUDESONIDE
     Dosage: UNK
  3. TARPEYO [Suspect]
     Active Substance: BUDESONIDE
     Dosage: UNK
  4. TARPEYO [Suspect]
     Active Substance: BUDESONIDE
     Dosage: TAKE 1 CAPSULE (4 MG) BY MOUTH ONCE DAILY
  5. TARPEYO [Suspect]
     Active Substance: BUDESONIDE
     Dosage: TAKE 1 CAPSULE (4 MG) BY MOUTH ONCE DAILY
  6. TACROLIMUS [Concomitant]
     Active Substance: TACROLIMUS
     Indication: Product used for unknown indication
     Dosage: UNK
  7. VITAMINS [Concomitant]
     Active Substance: VITAMINS
     Indication: Product used for unknown indication
     Dosage: UNK

REACTIONS (8)
  - Renal artery stenosis [Recovered/Resolved]
  - Alopecia [Not Recovered/Not Resolved]
  - Blood pressure increased [Recovered/Resolved]
  - Headache [Unknown]
  - Cushingoid [Unknown]
  - Pruritus [Unknown]
  - Inappropriate schedule of product administration [Unknown]
  - Prescribed underdose [Unknown]

NARRATIVE: CASE EVENT DATE: 20240401
